FAERS Safety Report 6283415-9 (Version None)
Quarter: 2009Q3

REPORT INFORMATION
  Report Type: 
  Country: None (occurrence: None)
  Receive Date: 20090724
  Receipt Date: 20090430
  Transmission Date: 20100115
  Serious: No
  Sender: FDA-Public Use
  Company Number: US-ALEXION-A200900238

PATIENT
  Sex: Female

DRUGS (3)
  1. SOLIRIS [Suspect]
     Indication: PAROXYSMAL NOCTURNAL HAEMOGLOBINURIA
     Dosage: 900 MG, Q2WK
     Route: 042
     Dates: start: 20090109
  2. DANAZOL [Concomitant]
     Dosage: 200 MG, BID
  3. PREDNISONE TAB [Concomitant]
     Dosage: 30-40 MG, QD

REACTIONS (1)
  - ALOPECIA [None]
